FAERS Safety Report 6288877-9 (Version None)
Quarter: 2009Q3

REPORT INFORMATION
  Report Type: 
  Country: None (occurrence: None)
  Receive Date: 20090729
  Receipt Date: 20090716
  Transmission Date: 20100115
  Serious: Yes (Hospitalization, Disabling)
  Sender: FDA-Public Use
  Company Number: US-ELI_LILLY_AND_COMPANY-US200906004641

PATIENT
  Sex: Female
  Weight: 85.034 kg

DRUGS (8)
  1. CYMBALTA [Suspect]
     Dosage: UNK, UNKNOWN
  2. BYETTA [Concomitant]
     Indication: TYPE 2 DIABETES MELLITUS
     Dosage: 5 UG, 2/D
     Route: 058
     Dates: start: 20081101, end: 20090101
  3. BYETTA [Concomitant]
     Dosage: 10 UG, 2/D
     Route: 058
     Dates: start: 20090101, end: 20090416
  4. METFORMIN [Concomitant]
     Dosage: UNK, UNKNOWN
  5. FENOFIBRATE [Concomitant]
     Indication: BLOOD TRIGLYCERIDES INCREASED
     Dosage: UNK, UNKNOWN
  6. SEROQUEL [Concomitant]
     Dosage: UNK, UNKNOWN
  7. CIMETIDINE [Concomitant]
     Dosage: UNK, UNKNOWN
     Dates: end: 20090401
  8. CLONAZEPAM [Concomitant]
     Dosage: UNK, UNKNOWN
     Dates: end: 20090401

REACTIONS (10)
  - ANXIETY [None]
  - ATTENTION DEFICIT/HYPERACTIVITY DISORDER [None]
  - BIPOLAR DISORDER [None]
  - BORDERLINE PERSONALITY DISORDER [None]
  - DEPRESSION [None]
  - DIARRHOEA [None]
  - IMPAIRED GASTRIC EMPTYING [None]
  - PANCREATITIS [None]
  - PANIC DISORDER WITH AGORAPHOBIA [None]
  - WEIGHT DECREASED [None]
